FAERS Safety Report 5957596-8 (Version None)
Quarter: 2008Q4

REPORT INFORMATION
  Report Type: 
  Country: None (occurrence: None)
  Receive Date: 20081117
  Receipt Date: 20081117
  Transmission Date: 20090506
  Serious: Yes (Hospitalization)
  Sender: FDA-Public Use
  Company Number: None

PATIENT
  Sex: Female
  Weight: 36.2878 kg

DRUGS (2)
  1. ABILIFY [Suspect]
     Indication: ATTENTION DEFICIT/HYPERACTIVITY DISORDER
     Dosage: 1 TAB IN THE AM 1 TIME DAILY 1 GIVEN 10/17 8AM 1 GIVEN 10/18 8AM
     Dates: start: 20081017
  2. ABILIFY [Suspect]
     Indication: ATTENTION DEFICIT/HYPERACTIVITY DISORDER
     Dosage: 1 TAB IN THE AM 1 TIME DAILY 1 GIVEN 10/17 8AM 1 GIVEN 10/18 8AM
     Dates: start: 20081018

REACTIONS (8)
  - AGITATION [None]
  - ANXIETY [None]
  - DEPRESSION [None]
  - DIZZINESS [None]
  - NAUSEA [None]
  - PRURITUS [None]
  - TARDIVE DYSKINESIA [None]
  - TREMOR [None]
